FAERS Safety Report 7484535-3 (Version None)
Quarter: 2011Q2

REPORT INFORMATION
  Report Type: 
  Country: None (occurrence: None)
  Receive Date: 20110517
  Receipt Date: 20110505
  Transmission Date: 20111010
  Serious: No
  Sender: FDA-Public Use
  Company Number: US-BIOGENIDEC-2011BI017382

PATIENT
  Sex: Female

DRUGS (1)
  1. TYSABRI [Suspect]
     Indication: MULTIPLE SCLEROSIS
     Route: 042
     Dates: start: 20071114

REACTIONS (6)
  - VITAMIN D DEFICIENCY [None]
  - PANIC ATTACK [None]
  - PAIN IN EXTREMITY [None]
  - GAIT DISTURBANCE [None]
  - EMOTIONAL DISORDER [None]
  - ARTHRALGIA [None]
